FAERS Safety Report 19376749 (Version 4)
Quarter: 2021Q3

REPORT INFORMATION
  Report Type: Report from Study
  Country: US (occurrence: US)
  Receive Date: 20210604
  Receipt Date: 20210913
  Transmission Date: 20211014
  Serious: No
  Sender: FDA-Public Use
  Company Number: NVSC2021US118225

PATIENT
  Sex: Male

DRUGS (2)
  1. ENTRESTO [Suspect]
     Active Substance: SACUBITRIL\VALSARTAN
     Indication: PRODUCT USED FOR UNKNOWN INDICATION
     Dosage: UNK
     Route: 065
  2. METFORMIN [Suspect]
     Active Substance: METFORMIN HYDROCHLORIDE
     Indication: PRODUCT USED FOR UNKNOWN INDICATION
     Route: 065

REACTIONS (8)
  - Wrist fracture [Recovered/Resolved]
  - Glycosylated haemoglobin increased [Unknown]
  - Weight decreased [Unknown]
  - Head injury [Unknown]
  - Joint injury [Not Recovered/Not Resolved]
  - Tooth infection [Unknown]
  - Fall [Unknown]
  - Blood glucose increased [Unknown]
